FAERS Safety Report 6486163-5 (Version None)
Quarter: 2009Q4

REPORT INFORMATION
  Report Type: 
  Country: None (occurrence: None)
  Receive Date: 20091207
  Receipt Date: 20091123
  Transmission Date: 20100525
  Serious: Yes (Hospitalization)
  Sender: FDA-Public Use
  Company Number: 2009AC000456

PATIENT
  Age: 73 Year
  Sex: Female

DRUGS (5)
  1. DIGOXIN [Suspect]
     Dosage: 0.125 MG; PO
     Route: 048
     Dates: start: 20030101
  2. METOPROLOL TARTRATE [Concomitant]
  3. GEMFIBROZIL [Concomitant]
  4. SINGULAIR [Concomitant]
  5. NITROGLYCERIN [Concomitant]

REACTIONS (6)
  - ECONOMIC PROBLEM [None]
  - MAMMOGRAM ABNORMAL [None]
  - MULTIPLE INJURIES [None]
  - PALPITATIONS [None]
  - SURGERY [None]
  - UNEVALUABLE EVENT [None]
